FAERS Safety Report 23335556 (Version 3)
Quarter: 2025Q3

REPORT INFORMATION
  Report Type: Report from Study
  Country: AR (occurrence: AR)
  Receive Date: 20231225
  Receipt Date: 20250715
  Transmission Date: 20251020
  Serious: Yes (Death, Hospitalization, Other)
  Sender: NOVARTIS
  Company Number: AR-002147023-NVSC2023AR170418

PATIENT
  Sex: Female

DRUGS (3)
  1. KISQALI [Suspect]
     Active Substance: RIBOCICLIB SUCCINATE
     Indication: Breast cancer metastatic
     Dosage: 600 MG, QD
     Route: 048
     Dates: start: 20230307
  2. LETROZOLE [Suspect]
     Active Substance: LETROZOLE
     Indication: Product used for unknown indication
     Route: 065
  3. PAMIDRONATE [Concomitant]
     Active Substance: PAMIDRONATE DISODIUM
     Indication: Product used for unknown indication
     Route: 065

REACTIONS (32)
  - Breast cancer [Fatal]
  - Malignant neoplasm progression [Fatal]
  - Metastases to liver [Fatal]
  - Malaise [Fatal]
  - Weight decreased [Fatal]
  - Anaemia [Fatal]
  - Haemoglobin decreased [Fatal]
  - Red blood cell count decreased [Fatal]
  - Syncope [Fatal]
  - Eating disorder [Fatal]
  - Liver disorder [Fatal]
  - Drug-induced liver injury [Fatal]
  - Nausea [Fatal]
  - Jaundice [Fatal]
  - Chromaturia [Fatal]
  - Fatigue [Fatal]
  - Abdominal pain [Fatal]
  - Decreased appetite [Fatal]
  - Muscle atrophy [Fatal]
  - Vomiting [Recovering/Resolving]
  - Hepatotoxicity [Not Recovered/Not Resolved]
  - Metastases to spine [Unknown]
  - Septic rash [Unknown]
  - Hepatomegaly [Unknown]
  - Gastrointestinal neoplasm [Unknown]
  - Bone neoplasm [Unknown]
  - Pain [Unknown]
  - Aspartate aminotransferase increased [Unknown]
  - Blood alkaline phosphatase increased [Unknown]
  - Blood bilirubin increased [Unknown]
  - Hepatic enzyme increased [Unknown]
  - Product availability issue [Unknown]

NARRATIVE: CASE EVENT DATE: 20230101
